FAERS Safety Report 7589354-5 (Version None)
Quarter: 2011Q3

REPORT INFORMATION
  Report Type: 
  Country: None (occurrence: None)
  Receive Date: 20110705
  Receipt Date: 20110624
  Transmission Date: 20111222
  Serious: Yes (Hospitalization, Other)
  Sender: FDA-Public Use
  Company Number: US-ROCHE-722613

PATIENT
  Sex: Male
  Weight: 61.2 kg

DRUGS (3)
  1. ADVIL LIQUI-GELS [Concomitant]
  2. ACCUTANE [Suspect]
     Indication: ACNE
     Route: 048
     Dates: start: 20010316, end: 20010801
  3. ACCUTANE [Suspect]
     Route: 048
     Dates: start: 20030916, end: 20040204

REACTIONS (24)
  - ARTHRALGIA [None]
  - CHAPPED LIPS [None]
  - ENTERITIS INFECTIOUS [None]
  - MULTIPLE ALLERGIES [None]
  - IRRITABLE BOWEL SYNDROME [None]
  - GASTROENTERITIS VIRAL [None]
  - SMALL INTESTINAL OBSTRUCTION [None]
  - CROHN'S DISEASE [None]
  - VOMITING [None]
  - ANXIETY [None]
  - PAIN [None]
  - NEPHROLITHIASIS [None]
  - INFLAMMATORY BOWEL DISEASE [None]
  - EMOTIONAL DISTRESS [None]
  - GASTROOESOPHAGEAL REFLUX DISEASE [None]
  - TENDONITIS [None]
  - DECREASED APPETITE [None]
  - IRRITABILITY [None]
  - BLOOD ALKALINE PHOSPHATASE INCREASED [None]
  - WEIGHT DECREASED [None]
  - INJURY [None]
  - ANAEMIA [None]
  - DRUG HYPERSENSITIVITY [None]
  - INSOMNIA [None]
